FAERS Safety Report 8983787 (Version 1)
Quarter: 2012Q4

REPORT INFORMATION
  Report Type: 
  Country: CA (occurrence: CA)
  Receive Date: 20121224
  Receipt Date: 20121224
  Transmission Date: 20130627
  Serious: Yes (Hospitalization, Other)
  Sender: FDA-Public Use
  Company Number: CA-AMGEN-CANSP2012023795

PATIENT
  Age: 75 Year
  Sex: Female
  Weight: 77.1 kg

DRUGS (20)
  1. PROLIA [Suspect]
     Indication: OSTEOPOROSIS
     Dosage: 60 mg, q6mo
     Route: 058
     Dates: start: 20111114
  2. FLORASTOR [Concomitant]
     Dosage: 250 mg, bid
     Dates: start: 20111229
  3. CENTRUM SELECT 50+ [Concomitant]
     Dosage: UNK UNK, qd
     Dates: start: 20111229
  4. EURO-FERROUS SULFATE [Concomitant]
     Dosage: 300 mg, tid
     Dates: start: 20111229
  5. DOCUSATE CALCIUM [Concomitant]
     Indication: CONSTIPATION
     Dosage: 240 mg, qd
     Dates: start: 20111229
  6. VITAMIN B12                        /00056201/ [Concomitant]
     Dosage: 1000 mug, qmo
     Route: 030
     Dates: start: 20111229
  7. PMS SENNOSIDES [Concomitant]
     Dosage: 8.6 mg, bid
     Dates: start: 20111229
  8. PANTOPRAZOLE [Concomitant]
     Indication: GASTRIC DISORDER
     Dosage: 40 mg, qd
     Dates: start: 20111229
  9. APO OXAZEPAM [Concomitant]
     Indication: INSOMNIA
     Dosage: 15 mg, prn
     Dates: start: 20111229
  10. APO FUROSEMIDE [Concomitant]
     Indication: BLOOD PRESSURE
     Dosage: 20 mg, qd
     Dates: start: 20111229
  11. APO FUROSEMIDE [Concomitant]
     Indication: FLUID RETENTION
  12. BIOCAL-D [Concomitant]
     Dosage: 500 mg, bid
     Dates: start: 20111229
  13. APO BISOPROLOL [Concomitant]
     Indication: BLOOD PRESSURE
     Dosage: 5 mg, qd
     Dates: start: 20111229
  14. APO BISOPROLOL [Concomitant]
     Indication: CARDIAC DISORDER
  15. AMIODARONE [Concomitant]
     Indication: CARDIAC DISORDER
     Dosage: 200 mg, qd
     Dates: start: 20111229
  16. ACETAMINOPHEN [Concomitant]
     Indication: PAIN
     Dosage: 652 mg, q4h
     Dates: start: 20111229
  17. COUMADIN                           /00014802/ [Concomitant]
     Dosage: 2.5 mg, one time dose
     Dates: start: 20111106
  18. HYZAAR [Concomitant]
     Dosage: UNK UNK, bid
  19. NEXIUM                             /01479302/ [Concomitant]
     Dosage: UNK UNK, bid
  20. STATEX                             /00036302/ [Concomitant]
     Dosage: 5 mg, q4h
     Route: 048

REACTIONS (11)
  - Femur fracture [Recovered/Resolved]
  - Fall [Recovered/Resolved]
  - Hypertension [Unknown]
  - Hypokalaemia [Recovered/Resolved]
  - Wound infection [Unknown]
  - Clostridium difficile infection [Unknown]
  - Pelvic fracture [Unknown]
  - Anaemia postoperative [Unknown]
  - Hip fracture [Recovered/Resolved]
  - Pain in extremity [Unknown]
  - Cellulitis [Unknown]
